FAERS Safety Report 4633292-4 (Version None)
Quarter: 2005Q2

REPORT INFORMATION
  Report Type: 
  Country: None (occurrence: None)
  Receive Date: 20050412
  Receipt Date: 20050318
  Transmission Date: 20051028
  Serious: Yes (Other)
  Sender: FDA-Public Use
  Company Number: FR-ABBOTT-05P-056-0294762-00

PATIENT
  Sex: Male
  Weight: 80 kg

DRUGS (9)
  1. HUMIRA [Suspect]
     Indication: POLYARTHRITIS
     Route: 058
     Dates: start: 20050310, end: 20050310
  2. HUMIRA [Suspect]
  3. CORTICOIDS [Concomitant]
     Indication: POLYARTHRITIS
     Route: 048
  4. CORTICOIDS [Concomitant]
     Indication: RHEUMATOID ARTHRITIS
     Route: 042
  5. PREDNISONE [Concomitant]
     Indication: POLYARTHRITIS
     Route: 048
     Dates: start: 20000101
  6. METHOTREXATE [Concomitant]
     Indication: POLYARTHRITIS
     Dates: start: 20021201
  7. TRAMADOL HCL [Concomitant]
     Indication: POLYARTHRITIS
     Route: 048
     Dates: start: 20020101
  8. COLECALCIFEROL [Concomitant]
     Indication: POLYARTHRITIS
     Route: 048
     Dates: start: 20020101
  9. METHYLPREDNISOLONE [Concomitant]
     Indication: ARTHRITIS
     Dosage: BOLUS
     Route: 042
     Dates: start: 20050309, end: 20050311

REACTIONS (2)
  - RASH MACULO-PAPULAR [None]
  - RASH PRURITIC [None]
